FAERS Safety Report 10950913 (Version 2)
Quarter: 2015Q3

REPORT INFORMATION
  Report Type: Report from Study
  Country: US (occurrence: US)
  Receive Date: 20150324
  Receipt Date: 20150805
  Transmission Date: 20151125
  Serious: Yes (Other)
  Sender: FDA-Public Use
  Company Number: US-BIOMARINAP-US-2015-105862

PATIENT
  Age: 13 Year
  Sex: Male
  Weight: 32 kg

DRUGS (2)
  1. NAGLAZYME [Suspect]
     Active Substance: GALSULFASE
     Dosage: 1 MG/KG, QW
     Route: 041
     Dates: start: 20050713, end: 20050906
  2. NAGLAZYME [Suspect]
     Active Substance: GALSULFASE
     Indication: MUCOPOLYSACCHARIDOSIS VI
     Dosage: 35 MG, QW
     Route: 041
     Dates: start: 20090610

REACTIONS (1)
  - Foot deformity [Recovered/Resolved]

NARRATIVE: CASE EVENT DATE: 20150304
